FAERS Safety Report 5350753-3 (Version None)
Quarter: 2007Q2

REPORT INFORMATION
  Report Type: 
  Country: None (occurrence: None)
  Receive Date: 20070608
  Receipt Date: 20070529
  Transmission Date: 20071010
  Serious: Yes (Hospitalization, Disabling)
  Sender: FDA-Public Use
  Company Number: FI-ROCHE-492997

PATIENT
  Sex: Female

DRUGS (1)
  1. BONIVA [Suspect]
     Indication: DRUG USE FOR UNKNOWN INDICATION
     Route: 048
     Dates: start: 20070208, end: 20070208

REACTIONS (8)
  - ARTHRALGIA [None]
  - CHILLS [None]
  - FALL [None]
  - FEELING COLD [None]
  - FRACTURE [None]
  - LOSS OF CONSCIOUSNESS [None]
  - MALAISE [None]
  - MICTURITION URGENCY [None]
